FAERS Safety Report 4738743-2 (Version None)
Quarter: 2005Q3

REPORT INFORMATION
  Report Type: 
  Country: None (occurrence: None)
  Receive Date: 20050808
  Receipt Date: 20050808
  Transmission Date: 20060218
  Serious: Yes (Hospitalization)
  Sender: FDA-Public Use
  Company Number: None

PATIENT
  Age: 73 Year
  Sex: Male
  Weight: 99.7913 kg

DRUGS (2)
  1. WARFARIN     5MG [Suspect]
     Indication: ATRIAL FIBRILLATION
     Dosage: 2.5 MG    M, W    ORAL;  5MG  OTHER DAYS  ORAL
     Route: 048
     Dates: start: 20030101, end: 20050715
  2. WARFARIN     5MG [Suspect]
     Indication: CEREBROVASCULAR ACCIDENT
     Dosage: 2.5 MG    M, W    ORAL;  5MG  OTHER DAYS  ORAL
     Route: 048
     Dates: start: 20030101, end: 20050715

REACTIONS (6)
  - CHROMATURIA [None]
  - DRUG LEVEL ABOVE THERAPEUTIC [None]
  - GASTROINTESTINAL HAEMORRHAGE [None]
  - HAEMORRHAGE [None]
  - LACERATION [None]
  - VOMITING [None]
